FAERS Safety Report 5900652-0 (Version None)
Quarter: 2008Q3

REPORT INFORMATION
  Report Type: 
  Country: None (occurrence: None)
  Receive Date: 20080926
  Receipt Date: 20080917
  Transmission Date: 20090109
  Serious: Yes (Other)
  Sender: FDA-Public Use
  Company Number: GB-PFIZER INC-2008079005

PATIENT
  Age: 46 Year
  Sex: Male

DRUGS (2)
  1. IRINOTECAN HCL [Suspect]
  2. CETUXIMAB [Concomitant]

REACTIONS (3)
  - HYPERTENSION [None]
  - MALAISE [None]
  - SYNCOPE [None]
